FAERS Safety Report 10924260 (Version 1)
Quarter: 2015Q1

REPORT INFORMATION
  Report Type: Spontaneous
  Country: US (occurrence: None)
  Receive Date: 20150129
  Receipt Date: 20150129
  Transmission Date: 20150721
  Serious: Yes (Other)
  Sender: FDA-Public Use
  Company Number: 108744U

PATIENT
  Sex: Male

DRUGS (2)
  1. DILANTIN (PHENYTOIN) [Concomitant]
  2. KEPPRA [Suspect]
     Active Substance: LEVETIRACETAM
     Dosage: UNKNOWN DOSE

REACTIONS (2)
  - Aura [None]
  - Complex partial seizures [None]
